FAERS Safety Report 12484433 (Version 1)
Quarter: 2016Q2

REPORT INFORMATION
  Report Type: Spontaneous
  Country: US (occurrence: None)
  Receive Date: 20160620
  Receipt Date: 20160620
  Transmission Date: 20160815
  Serious: Yes (Other)
  Sender: FDA-Public Use
  Company Number: None

PATIENT
  Sex: Female

DRUGS (12)
  1. OMEPRAZOLE. [Concomitant]
     Active Substance: OMEPRAZOLE
  2. FLAXSEED [Concomitant]
     Active Substance: FLAX SEED
  3. LOSARTAN. [Concomitant]
     Active Substance: LOSARTAN
  4. VITAMIN E [Concomitant]
     Active Substance: .ALPHA.-TOCOPHEROL
  5. GATIFLOXACIN. [Concomitant]
     Active Substance: GATIFLOXACIN
  6. DICYCLOMINE [Concomitant]
     Active Substance: DICYCLOMINE HYDROCHLORIDE
  7. PREDISONE [Concomitant]
     Active Substance: PREDNISONE
  8. CALCIUM + VITAMIN D [Concomitant]
     Active Substance: CALCIUM\VITAMIN D
  9. MAGNESIUM [Concomitant]
     Active Substance: MAGNESIUM
  10. HYDROCHLOROTHIAIZIDE, 12.5 MG [Suspect]
     Active Substance: HYDROCHLOROTHIAZIDE
     Indication: HYPERTENSION
     Route: 048
  11. KETOROLAC [Concomitant]
     Active Substance: KETOROLAC\KETOROLAC TROMETHAMINE
  12. VITAMIN C [Concomitant]
     Active Substance: ASCORBIC ACID

REACTIONS (4)
  - Diplopia [None]
  - Vision blurred [None]
  - Post procedural complication [None]
  - Lens disorder [None]

NARRATIVE: CASE EVENT DATE: 20160120
